FAERS Safety Report 6965889-0 (Version None)
Quarter: 2010Q3

REPORT INFORMATION
  Report Type: 
  Country: None (occurrence: None)
  Receive Date: 20100903
  Receipt Date: 20100827
  Transmission Date: 20110219
  Serious: Yes (Hospitalization)
  Sender: FDA-Public Use
  Company Number: US-US-EMD SERONO, INC.-233764J09USA

PATIENT
  Sex: Female
  Weight: 92 kg

DRUGS (2)
  1. REBIF [Suspect]
     Indication: MULTIPLE SCLEROSIS
     Route: 058
     Dates: start: 20050311
  2. MOTRIN [Concomitant]
     Indication: PREMEDICATION

REACTIONS (6)
  - ARTERIOSPASM CORONARY [None]
  - CHEST PAIN [None]
  - INJECTION SITE REACTION [None]
  - MIGRAINE [None]
  - MUSCULOSKELETAL CHEST PAIN [None]
  - VIRAL INFECTION [None]
